FAERS Safety Report 18933367 (Version 1)
Quarter: 2021Q1

REPORT INFORMATION
  Report Type: Spontaneous
  Country: US (occurrence: US)
  Receive Date: 20210223
  Receipt Date: 20210223
  Transmission Date: 20210420
  Serious: Yes (Death)
  Sender: FDA-Public Use
  Company Number: None

PATIENT
  Sex: Female

DRUGS (6)
  1. PACLITAXEL. [Concomitant]
     Active Substance: PACLITAXEL
  2. GRANISETRON [Suspect]
     Active Substance: GRANISETRON
     Indication: MALIGNANT MELANOMA
     Route: 042
     Dates: start: 20200924
  3. DIPHENHYDRAMINE 50MG/ML [Suspect]
     Active Substance: DIPHENHYDRAMINE
     Indication: MALIGNANT MELANOMA
     Route: 042
     Dates: start: 20200924
  4. FAMOTIDINE. [Concomitant]
     Active Substance: FAMOTIDINE
  5. CARBOPLATIN. [Concomitant]
     Active Substance: CARBOPLATIN
  6. DEXAMETHASONE. [Concomitant]
     Active Substance: DEXAMETHASONE

REACTIONS (1)
  - Death [None]
